FAERS Safety Report 17937688 (Version 1)
Quarter: 2020Q2

REPORT INFORMATION
  Report Type: Spontaneous
  Country: FR (occurrence: FR)
  Receive Date: 20200624
  Receipt Date: 20200624
  Transmission Date: 20200714
  Serious: Yes (Hospitalization)
  Sender: FDA-Public Use
  Company Number: FR-PFIZER INC-2020240589

PATIENT
  Age: 26 Year
  Sex: Female
  Weight: 56.4 kg

DRUGS (6)
  1. CLARADOL [Suspect]
     Active Substance: ACETAMINOPHEN
     Indication: INTENTIONAL OVERDOSE
     Dosage: 16 DF, SINGLE
     Route: 048
     Dates: start: 20200116, end: 20200116
  2. DOXYLAMINE [Suspect]
     Active Substance: DOXYLAMINE
     Indication: INTENTIONAL OVERDOSE
     Dosage: UNK
     Route: 048
     Dates: start: 20200116, end: 20200116
  3. QUETIAPINE. [Suspect]
     Active Substance: QUETIAPINE
     Indication: INTENTIONAL OVERDOSE
     Dosage: 70 DF, SINGLE
     Route: 048
     Dates: start: 20200116, end: 20200116
  4. DAFALGAN CODEINE [Suspect]
     Active Substance: ACETAMINOPHEN\CODEINE PHOSPHATE
     Indication: INTENTIONAL OVERDOSE
     Dosage: UNK
     Route: 048
     Dates: start: 20200116, end: 20200116
  5. IBUPROFEN. [Suspect]
     Active Substance: IBUPROFEN
     Indication: INTENTIONAL OVERDOSE
     Dosage: UNK
     Route: 048
     Dates: start: 20200116, end: 20200116
  6. PARACETAMOL [Suspect]
     Active Substance: ACETAMINOPHEN
     Indication: INTENTIONAL OVERDOSE
     Dosage: 26 G, SINGLE
     Route: 048
     Dates: start: 20200116, end: 20200116

REACTIONS (3)
  - Hepatic failure [Recovered/Resolved]
  - Intentional overdose [Recovered/Resolved]
  - Drug-induced liver injury [Recovered/Resolved]

NARRATIVE: CASE EVENT DATE: 20200116
